FAERS Safety Report 5330564-5 (Version None)
Quarter: 2007Q2

REPORT INFORMATION
  Report Type: 
  Country: None (occurrence: None)
  Receive Date: 20070516
  Receipt Date: 20070507
  Transmission Date: 20071010
  Serious: Yes (Hospitalization)
  Sender: FDA-Public Use
  Company Number: B0470046A

PATIENT
  Age: 80 Year
  Sex: Female

DRUGS (2)
  1. VALTREX [Suspect]
     Indication: HERPES ZOSTER
     Dosage: ORAL
     Route: 048
  2. VIDARABINE [Concomitant]

REACTIONS (4)
  - ANURIA [None]
  - RENAL FAILURE [None]
  - SCAB [None]
  - URINARY RETENTION [None]
